FAERS Safety Report 20562200 (Version 2)
Quarter: 2022Q1

REPORT INFORMATION
  Report Type: Spontaneous
  Country: US (occurrence: US)
  Receive Date: 20220307
  Receipt Date: 20220326
  Transmission Date: 20220423
  Serious: No
  Sender: FDA-Public Use
  Company Number: US-TEVA-2022-US-2012654

PATIENT
  Age: 74 Year
  Sex: Female

DRUGS (1)
  1. LIOTHYRONINE SODIUM [Suspect]
     Active Substance: LIOTHYRONINE SODIUM
     Indication: Hypothyroidism
     Dosage: 15 MICROGRAM DAILY;
     Route: 065
     Dates: start: 20220118

REACTIONS (4)
  - Drug ineffective [Unknown]
  - Asthenia [Unknown]
  - Sluggishness [Unknown]
  - Change in sustained attention [Unknown]

NARRATIVE: CASE EVENT DATE: 20220101
